FAERS Safety Report 7271198-5 (Version None)
Quarter: 2011Q1

REPORT INFORMATION
  Report Type: 
  Country: None (occurrence: None)
  Receive Date: 20110202
  Receipt Date: 20110131
  Transmission Date: 20110831
  Serious: No
  Sender: FDA-Public Use
  Company Number: US-PFIZER INC-2011022408

PATIENT
  Sex: Male
  Weight: 149.66 kg

DRUGS (3)
  1. CLONIDINE [Concomitant]
     Dosage: 1 MG, UNK
  2. LAMOTRIGINE [Concomitant]
     Dosage: 100 MG, UNK
  3. GEODON [Suspect]
     Indication: ABNORMAL BEHAVIOUR
     Dosage: 40 MG, 2X/DAY
     Route: 048
     Dates: start: 20110109

REACTIONS (1)
  - PARAESTHESIA [None]
